FAERS Safety Report 9696844 (Version 1)
Quarter: 2013Q4

REPORT INFORMATION
  Report Type: Spontaneous
  Country: US (occurrence: US)
  Receive Date: 20131119
  Receipt Date: 20131119
  Transmission Date: 20140711
  Serious: No
  Sender: FDA-Public Use
  Company Number: US-GILEAD-2007-0013474

PATIENT
  Age: 64 Year
  Sex: Female

DRUGS (16)
  1. LETAIRIS [Suspect]
     Indication: PULMONARY ARTERIAL HYPERTENSION
     Route: 048
     Dates: start: 20070916
  2. REVATIO [Concomitant]
     Route: 048
  3. WARFARIN [Concomitant]
     Route: 048
  4. NORVASC [Concomitant]
     Route: 048
  5. LASIX [Concomitant]
     Route: 048
  6. DEMECLOCYCLINE [Concomitant]
     Route: 048
  7. PREDNISONE [Concomitant]
     Dosage: TAPER
  8. PROLASTIN [Concomitant]
     Route: 042
  9. FORADIL [Concomitant]
     Route: 055
  10. FLOVENT [Concomitant]
     Route: 055
  11. PROAIR [Concomitant]
     Route: 055
  12. DIGITEK [Concomitant]
     Route: 048
  13. ZYRTEC [Concomitant]
     Route: 048
  14. KLOR-CON [Concomitant]
     Route: 048
  15. OMEPRAZOLE [Concomitant]
     Route: 048
  16. HYDROCORTISONE [Concomitant]

REACTIONS (2)
  - Tremor [Unknown]
  - Dyspnoea [Unknown]
